FAERS Safety Report 21174380 (Version 11)
Quarter: 2023Q4

REPORT INFORMATION
  Report Type: Spontaneous
  Country: CA (occurrence: CA)
  Receive Date: 20220804
  Receipt Date: 20231117
  Transmission Date: 20240109
  Serious: Yes (Other)
  Sender: FDA-Public Use
  Company Number: CA-CELLTRION INC.-2022CA012243

PATIENT

DRUGS (7)
  1. INFLECTRA [Suspect]
     Active Substance: INFLIXIMAB-DYYB
     Indication: Colitis ulcerative
     Dosage: 600 MG, INDUCTION AT 0,2,6 WEEK THEN EVERY 8 WEEKS,WEEK 0 DOSE AT HOSPITAL
     Route: 042
     Dates: start: 20220705
  2. INFLECTRA [Suspect]
     Active Substance: INFLIXIMAB-DYYB
     Dosage: 600 MG, INDUCTION AT 0,2,6 WEEK THEN EVERY 8 WEEKS,WEEK 0 DOSE AT HOSPITAL
     Route: 042
     Dates: start: 20220721
  3. INFLECTRA [Suspect]
     Active Substance: INFLIXIMAB-DYYB
     Dosage: 600 MG, INDUCTION AT 0,2,6 WEEK THEN EVERY 8 WEEKS,WEEK 0 DOSE AT HOSPITAL
     Route: 042
     Dates: start: 20220818
  4. INFLECTRA [Suspect]
     Active Substance: INFLIXIMAB-DYYB
     Dosage: 600 MG, INDUCTION AT 0,2,6 WEEK THEN EVERY 8 WEEKS,WEEK 0 DOSE AT HOSPITAL
     Route: 042
     Dates: start: 20221209
  5. INFLECTRA [Suspect]
     Active Substance: INFLIXIMAB-DYYB
     Dosage: 600MG EVERY 6 WEEKS
     Route: 042
     Dates: start: 20230207
  6. INFLECTRA [Suspect]
     Active Substance: INFLIXIMAB-DYYB
     Dosage: 600MG EVERY 6 WEEKS
     Route: 042
     Dates: start: 20230321
  7. INFLECTRA [Suspect]
     Active Substance: INFLIXIMAB-DYYB
     Dosage: 600MG EVERY 6 WEEKS
     Route: 042
     Dates: start: 20230502

REACTIONS (6)
  - Condition aggravated [Recovered/Resolved]
  - Treatment failure [Unknown]
  - Therapy non-responder [Unknown]
  - Off label use [Unknown]
  - Off label use [Unknown]
  - Intentional product use issue [Unknown]

NARRATIVE: CASE EVENT DATE: 20230207
